FAERS Safety Report 10986291 (Version 2)
Quarter: 2015Q2

REPORT INFORMATION
  Report Type: Spontaneous
  Country: US (occurrence: US)
  Receive Date: 20150404
  Receipt Date: 20150525
  Transmission Date: 20150821
  Serious: No
  Sender: FDA-Public Use
  Company Number: US-JNJFOC-20131001990

PATIENT
  Age: 79 Year
  Sex: Female
  Weight: 68.04 kg

DRUGS (5)
  1. AFEDITAB [Concomitant]
     Indication: HYPERTENSION
     Route: 065
  2. SIMVASTATIN. [Concomitant]
     Active Substance: SIMVASTATIN
     Indication: BLOOD CHOLESTEROL INCREASED
     Route: 065
  3. IMODIUM MULTI-SYMPTOM RELIEF [Suspect]
     Active Substance: DIMETHICONE\LOPERAMIDE HYDROCHLORIDE
     Route: 048
  4. IMODIUM MULTI-SYMPTOM RELIEF [Suspect]
     Active Substance: DIMETHICONE\LOPERAMIDE HYDROCHLORIDE
     Indication: DIARRHOEA
     Route: 048
     Dates: start: 20130909
  5. LISINOPRIL. [Concomitant]
     Active Substance: LISINOPRIL
     Indication: HYPERTENSION
     Route: 065

REACTIONS (5)
  - Drug ineffective [Unknown]
  - Product taste abnormal [Unknown]
  - Abdominal pain upper [Recovered/Resolved]
  - Dysphagia [Unknown]
  - Choking [Unknown]

NARRATIVE: CASE EVENT DATE: 20130909
